FAERS Safety Report 25151912 (Version 1)
Quarter: 2025Q2

REPORT INFORMATION
  Report Type: Spontaneous
  Country: US (occurrence: US)
  Receive Date: 20250402
  Receipt Date: 20250402
  Transmission Date: 20250717
  Serious: No
  Sender: JOHNSON AND JOHNSON
  Company Number: US-JNJFOC-20250362807

PATIENT
  Sex: Female

DRUGS (11)
  1. REMICADE [Suspect]
     Active Substance: INFLIXIMAB
     Indication: Product used for unknown indication
     Route: 041
  2. PENNSAID [Concomitant]
     Active Substance: DICLOFENAC SODIUM
  3. DICLOFENAC SODIUM [Concomitant]
     Active Substance: DICLOFENAC SODIUM
  4. FOLIC ACID [Concomitant]
     Active Substance: FOLIC ACID
  5. PROLIA [Concomitant]
     Active Substance: DENOSUMAB
  6. METHOTREXATE [Concomitant]
     Active Substance: METHOTREXATE
  7. PREDNISONE [Concomitant]
     Active Substance: PREDNISONE
  8. XELJANZ [Concomitant]
     Active Substance: TOFACITINIB CITRATE
  9. CELEBREX [Concomitant]
     Active Substance: CELECOXIB
  10. DICLOFENAC [Concomitant]
     Active Substance: DICLOFENAC
  11. LEFLUNOMIDE [Concomitant]
     Active Substance: LEFLUNOMIDE

REACTIONS (1)
  - Urticaria [Unknown]
